FAERS Safety Report 6224735-3 (Version None)
Quarter: 2009Q2

REPORT INFORMATION
  Report Type: 
  Country: None (occurrence: None)
  Receive Date: 20090612
  Receipt Date: 20090327
  Transmission Date: 20091009
  Serious: No
  Sender: FDA-Public Use
  Company Number: US-ABBOTT-09P-163-0565226-00

PATIENT
  Sex: Female
  Weight: 53.572 kg

DRUGS (2)
  1. HUMIRA [Suspect]
     Indication: CROHN'S DISEASE
     Route: 058
     Dates: start: 20080101
  2. HUMIRA [Suspect]
     Indication: CROHN'S DISEASE
     Route: 058

REACTIONS (5)
  - COLONIC STENOSIS [None]
  - COLONOSCOPY ABNORMAL [None]
  - CROHN'S DISEASE [None]
  - GASTROINTESTINAL DISORDER [None]
  - INJECTION SITE IRRITATION [None]
